FAERS Safety Report 15075424 (Version 2)
Quarter: 2023Q4

REPORT INFORMATION
  Report Type: Spontaneous
  Country: US (occurrence: US)
  Receive Date: 20180627
  Receipt Date: 20231128
  Transmission Date: 20240109
  Serious: No
  Sender: FDA-Public Use
  Company Number: US-SAOL THERAPEUTICS-2018SAO00606

PATIENT

DRUGS (3)
  1. LIORESAL [Suspect]
     Active Substance: BACLOFEN
     Dosage: 25 ?G, UNK, INTRATHECAL TEST DOSE
     Route: 037
  2. BACLOFEN [Concomitant]
     Active Substance: BACLOFEN
     Dosage: 120 MG, 1X/DAY
     Route: 048
  3. ZANAFLEX [Concomitant]
     Active Substance: TIZANIDINE HYDROCHLORIDE
     Dosage: 6 MG, 1X/DAY AT NIGHT
     Route: 048

REACTIONS (1)
  - Therapy non-responder [Not Recovered/Not Resolved]
